FAERS Safety Report 7555168-5 (Version None)
Quarter: 2011Q2

REPORT INFORMATION
  Report Type: 
  Country: None (occurrence: None)
  Receive Date: 20110617
  Receipt Date: 20110527
  Transmission Date: 20111010
  Serious: No
  Sender: FDA-Public Use
  Company Number: US-MYLANLABS-2011S1011298

PATIENT
  Age: 38 Year
  Sex: Male
  Weight: 104.33 kg

DRUGS (7)
  1. GLUMETZA [Concomitant]
  2. KLONOPIN [Concomitant]
     Indication: INSOMNIA
  3. BISOPROLOL FUMARATE [Concomitant]
     Indication: BLOOD PRESSURE
  4. RISPERIDONE [Suspect]
     Indication: ANXIETY
     Route: 048
     Dates: start: 20110101
  5. RITALIN [Concomitant]
  6. CYMBALTA [Concomitant]
  7. COUMADIN [Concomitant]

REACTIONS (1)
  - BLOOD TRIGLYCERIDES INCREASED [None]
